FAERS Safety Report 19592708 (Version 1)
Quarter: 2021Q3

REPORT INFORMATION
  Report Type: Spontaneous
  Country: US (occurrence: US)
  Receive Date: 20210721
  Receipt Date: 20210721
  Transmission Date: 20211014
  Serious: Yes (Hospitalization)
  Sender: FDA-Public Use
  Company Number: None

PATIENT
  Age: 72 Year
  Sex: Female
  Weight: 66 kg

DRUGS (30)
  1. OMEGA 3 [Concomitant]
     Active Substance: OMEGA-3 FATTY ACIDS
  2. FUROSEMIDE. [Concomitant]
     Active Substance: FUROSEMIDE
  3. FENTANYL. [Concomitant]
     Active Substance: FENTANYL
  4. PREDNISONE. [Concomitant]
     Active Substance: PREDNISONE
  5. HYDROMORPHONE [Concomitant]
     Active Substance: HYDROMORPHONE
  6. SALBUTAMOL [Concomitant]
     Active Substance: ALBUTEROL
  7. RHEO [Concomitant]
  8. MAVYRET [Suspect]
     Active Substance: GLECAPREVIR\PIBRENTASVIR
     Indication: HEPATITIS C
     Route: 048
     Dates: start: 20190302, end: 20190309
  9. PROGRAF [Concomitant]
     Active Substance: TACROLIMUS
  10. MYFORTIC [Concomitant]
     Active Substance: MYCOPHENOLATE SODIUM
  11. VITAMIN C [Concomitant]
     Active Substance: ASCORBIC ACID
  12. AZITHROMYCIN ANHYDROUS. [Concomitant]
     Active Substance: AZITHROMYCIN ANHYDROUS
  13. XYLOCAIN [Concomitant]
  14. SEPTRA [Concomitant]
     Active Substance: SULFAMETHOXAZOLE\TRIMETHOPRIM
  15. NYSTATIN. [Concomitant]
     Active Substance: NYSTATIN
  16. PANTOPRAZOLE [Concomitant]
     Active Substance: PANTOPRAZOLE
  17. GABAPENTIN. [Concomitant]
     Active Substance: GABAPENTIN
  18. VALGANCICLOVIR. [Concomitant]
     Active Substance: VALGANCICLOVIR
  19. LAX?A?DAY [Concomitant]
     Active Substance: POLYETHYLENE GLYCOL 3350
  20. SPIRIVA [Concomitant]
     Active Substance: TIOTROPIUM BROMIDE MONOHYDRATE
  21. EZETIMIBE 10MG TEVA [Suspect]
     Active Substance: EZETIMIBE
     Indication: HEPATITIS C
     Route: 048
     Dates: start: 20190302, end: 20190309
  22. VITAMIN D [Concomitant]
     Active Substance: VITAMIN D NOS
  23. FERROUS FUMORATE [Concomitant]
  24. ACTAMINOPHEN [Concomitant]
  25. ADVAIR HFA [Concomitant]
     Active Substance: FLUTICASONE PROPIONATE\SALMETEROL XINAFOATE
  26. DENOSUMAB [Concomitant]
     Active Substance: DENOSUMAB
  27. MAGNESIUM [Concomitant]
     Active Substance: MAGNESIUM
  28. SENNA [Concomitant]
     Active Substance: SENNA LEAF\SENNOSIDES\SENNOSIDES A AND B
  29. MIDAZOLAM. [Concomitant]
     Active Substance: MIDAZOLAM
  30. CALCIUM CARBONATE. [Concomitant]
     Active Substance: CALCIUM CARBONATE

REACTIONS (4)
  - Thrombosis [None]
  - Constipation [None]
  - Diarrhoea [None]
  - Pulmonary embolism [None]

NARRATIVE: CASE EVENT DATE: 20190408
